FAERS Safety Report 7473777-9 (Version None)
Quarter: 2011Q2

REPORT INFORMATION
  Report Type: 
  Country: None (occurrence: None)
  Receive Date: 20110511
  Receipt Date: 20110427
  Transmission Date: 20111010
  Serious: Yes (Other)
  Sender: FDA-Public Use
  Company Number: GB-JNJFOC-20110411938

PATIENT
  Age: 6 Year
  Sex: Male

DRUGS (2)
  1. ACETAMINOPHEN [Suspect]
     Indication: ABDOMINAL PAIN UPPER
     Route: 048
  2. ACETAMINOPHEN [Suspect]
     Route: 048

REACTIONS (2)
  - SOMNOLENCE [None]
  - HYPERSENSITIVITY [None]
